FAERS Safety Report 18642629 (Version 1)
Quarter: 2020Q4

REPORT INFORMATION
  Report Type: Spontaneous
  Country: US (occurrence: US)
  Receive Date: 20201218
  Receipt Date: 20201218
  Transmission Date: 20210114
  Serious: Yes (Hospitalization)
  Sender: FDA-Public Use
  Company Number: None

PATIENT
  Age: 67 Year
  Sex: Male
  Weight: 58.42 kg

DRUGS (1)
  1. CISPLATIN. [Suspect]
     Active Substance: CISPLATIN
     Dates: end: 20201007

REACTIONS (12)
  - Pneumonia [None]
  - Anaemia [None]
  - Transfusion [None]
  - Subdural haematoma [None]
  - Asthenia [None]
  - Pulmonary cavitation [None]
  - Productive cough [None]
  - Hemiparesis [None]
  - Dizziness [None]
  - Platelet count decreased [None]
  - Platelet transfusion [None]
  - Metastases to central nervous system [None]

NARRATIVE: CASE EVENT DATE: 20201028
